FAERS Safety Report 10934829 (Version 1)
Quarter: 2015Q1

REPORT INFORMATION
  Report Type: Spontaneous
  Country: US (occurrence: US)
  Receive Date: 20150320
  Receipt Date: 20150320
  Transmission Date: 20150721
  Serious: Yes (Death)
  Sender: FDA-Public Use
  Company Number: US-CIPLA LTD.-2015US02209

PATIENT

DRUGS (5)
  1. LEVOTHYROXINE [Suspect]
     Active Substance: LEVOTHYROXINE
  2. ZIPRASIDONE [Suspect]
     Active Substance: ZIPRASIDONE
  3. LAMOTRIGINE. [Suspect]
     Active Substance: LAMOTRIGINE
  4. ETHYLENE GLYCOL [Suspect]
     Active Substance: ETHYLENE GLYCOL
  5. LITHIUM [Suspect]
     Active Substance: LITHIUM CARBONATE

REACTIONS (1)
  - Completed suicide [Fatal]
